FAERS Safety Report 6528214-5 (Version None)
Quarter: 2010Q1

REPORT INFORMATION
  Report Type: 
  Country: None (occurrence: None)
  Receive Date: 20100106
  Receipt Date: 20091227
  Transmission Date: 20100710
  Serious: Yes (Hospitalization, Other)
  Sender: FDA-Public Use
  Company Number: JP-BAYER-200913530BYL

PATIENT
  Age: 85 Year
  Sex: Male
  Weight: 51 kg

DRUGS (4)
  1. NEXAVAR [Suspect]
     Indication: RENAL CELL CARCINOMA
     Dosage: TOTAL DAILY DOSE: 800 MG  UNIT DOSE: 200 MG
     Route: 048
     Dates: start: 20090119, end: 20090202
  2. NEXAVAR [Suspect]
     Dosage: UNIT DOSE: 200 MG
     Route: 048
     Dates: start: 20090302, end: 20090924
  3. MYSLEE [Concomitant]
     Route: 048
  4. FOIPAN [Concomitant]
     Route: 048

REACTIONS (9)
  - ALANINE AMINOTRANSFERASE INCREASED [None]
  - ANGINA PECTORIS [None]
  - ASPARTATE AMINOTRANSFERASE INCREASED [None]
  - BLOOD CREATININE INCREASED [None]
  - DISSEMINATED INTRAVASCULAR COAGULATION [None]
  - HYPERURICAEMIA [None]
  - INFECTION [None]
  - PLATELET COUNT DECREASED [None]
  - SYNCOPE [None]
